FAERS Safety Report 6359535-7 (Version None)
Quarter: 2009Q3

REPORT INFORMATION
  Report Type: 
  Country: None (occurrence: None)
  Receive Date: 20090917
  Receipt Date: 20090916
  Transmission Date: 20100115
  Serious: No
  Sender: FDA-Public Use
  Company Number: GB-JNJFOC-20090902774

PATIENT
  Sex: Female
  Weight: 51.26 kg

DRUGS (2)
  1. DURAGESIC-100 [Suspect]
     Indication: ANALGESIA
     Route: 062
     Dates: start: 20090901, end: 20090914
  2. MANY OTHER UNSPECIFIED MEDICATIONS [Concomitant]

REACTIONS (2)
  - PRODUCT QUALITY ISSUE [None]
  - WRONG TECHNIQUE IN DRUG USAGE PROCESS [None]
